FAERS Safety Report 8236624-3 (Version None)
Quarter: 2012Q1

REPORT INFORMATION
  Report Type: 
  Country: None (occurrence: None)
  Receive Date: 20120326
  Receipt Date: 20120326
  Transmission Date: 20120608
  Serious: Yes (Hospitalization, Other)
  Sender: FDA-Public Use
  Company Number: None

PATIENT
  Age: 75 Year
  Sex: Female
  Weight: 72.5755 kg

DRUGS (2)
  1. RECLAST [Suspect]
     Indication: BARRETT'S OESOPHAGUS
     Dosage: 1 YEAR DOSAGE
     Dates: start: 20120223
  2. RECLAST [Suspect]
     Indication: OSTEOPOROSIS
     Dosage: 1 YEAR DOSAGE
     Dates: start: 20120223

REACTIONS (7)
  - PAIN IN EXTREMITY [None]
  - NAUSEA [None]
  - VOMITING [None]
  - CHEST PAIN [None]
  - PAIN [None]
  - BACK PAIN [None]
  - EATING DISORDER [None]
